FAERS Safety Report 19726921 (Version 1)
Quarter: 2021Q3

REPORT INFORMATION
  Report Type: Spontaneous
  Country: GB (occurrence: GB)
  Receive Date: 20210820
  Receipt Date: 20210820
  Transmission Date: 20211014
  Serious: Yes (Other)
  Sender: FDA-Public Use
  Company Number: GB-GLAXOSMITHKLINE-GB2021174052

PATIENT
  Age: 27 Year
  Sex: Male
  Weight: 95.25 kg

DRUGS (1)
  1. LAMOTRIGINE. [Suspect]
     Active Substance: LAMOTRIGINE
     Indication: BIPOLAR DISORDER
     Dosage: 100 MG
     Route: 048
     Dates: start: 20210621, end: 20210721

REACTIONS (2)
  - Vision blurred [Not Recovered/Not Resolved]
  - Erectile dysfunction [Not Recovered/Not Resolved]
